FAERS Safety Report 5652160-2 (Version None)
Quarter: 2008Q1

REPORT INFORMATION
  Report Type: 
  Country: None (occurrence: None)
  Receive Date: 20080304
  Receipt Date: 20080220
  Transmission Date: 20080703
  Serious: Yes (Hospitalization)
  Sender: FDA-Public Use
  Company Number: E2020-02330-SPO-FR

PATIENT
  Age: 74 Year
  Sex: Female

DRUGS (5)
  1. ARICEPT [Suspect]
     Indication: DEMENTIA ALZHEIMER'S TYPE
     Dosage: 10 MG, 1 IN 1 D, ORAL
     Route: 048
     Dates: start: 20060701, end: 20080109
  2. PYOSTACINE (PRISTINAMYCIN) [Suspect]
     Indication: RESPIRATORY TRACT INFECTION
     Dosage: 2 GM ORAL
     Route: 048
     Dates: start: 20071226, end: 20080109
  3. SERETIDE (SERETIDE) [Concomitant]
  4. OXAZEPAM [Concomitant]
  5. UMULINE (INSULIN HUMAN ZINC SUSPENSION) [Concomitant]

REACTIONS (3)
  - ATRIAL FIBRILLATION [None]
  - ORTHOSTATIC HYPOTENSION [None]
  - SYNCOPE [None]
